FAERS Safety Report 9083334 (Version 1)
Quarter: 2013Q1

REPORT INFORMATION
  Report Type: Report from Study
  Country: US (occurrence: US)
  Receive Date: 20130130
  Receipt Date: 20130130
  Transmission Date: 20140127
  Serious: No
  Sender: FDA-Public Use
  Company Number: US-ABBOTT-12P-163-0978301-00

PATIENT
  Age: 72 Year
  Sex: Male

DRUGS (10)
  1. HUMIRA [Suspect]
     Indication: PRODUCT USED FOR UNKNOWN INDICATION
  2. VITAMIN D3 [Concomitant]
     Indication: SUPPLEMENTATION THERAPY
  3. FISH OIL [Concomitant]
     Indication: SUPPLEMENTATION THERAPY
  4. EVERYDAY HEALTH SUPPORT COMPLETE SENIOR SUPPLEMENT [Concomitant]
     Indication: SUPPLEMENTATION THERAPY
  5. POTASSIUM [Concomitant]
     Indication: PRODUCT USED FOR UNKNOWN INDICATION
  6. NEXIUM [Concomitant]
     Indication: ABDOMINAL DISCOMFORT
  7. DIGOXIN [Concomitant]
     Indication: CARDIAC DISORDER
  8. ATORVASTATIN [Concomitant]
     Indication: BLOOD CHOLESTEROL INCREASED
  9. FOLIC ACID [Concomitant]
     Indication: PRODUCT USED FOR UNKNOWN INDICATION
  10. ASPIRIN [Concomitant]
     Indication: PRODUCT USED FOR UNKNOWN INDICATION

REACTIONS (4)
  - Injury associated with device [Recovering/Resolving]
  - Device malfunction [Recovering/Resolving]
  - Incorrect dose administered [Recovering/Resolving]
  - Wrong drug administered [Recovering/Resolving]
